FAERS Safety Report 5669188-9 (Version None)
Quarter: 2008Q1

REPORT INFORMATION
  Report Type: 
  Country: None (occurrence: None)
  Receive Date: 20080312
  Receipt Date: 20080312
  Transmission Date: 20080703
  Serious: Yes (Other)
  Sender: FDA-Public Use
  Company Number: None

PATIENT
  Sex: Male
  Weight: 72 kg

DRUGS (1)
  1. CREST PRO HEALTH DENTAL RINSE [Suspect]
     Indication: DENTAL DISORDER PROPHYLAXIS
     Dosage: 20 ML TWICE A DAY PO
     Route: 048
     Dates: start: 20071009, end: 20080310

REACTIONS (1)
  - TOOTH DISCOLOURATION [None]
